FAERS Safety Report 10540818 (Version 2)
Quarter: 2014Q4

REPORT INFORMATION
  Report Type: Spontaneous
  Country: FR (occurrence: FR)
  Receive Date: 20141024
  Receipt Date: 20141103
  Transmission Date: 20150529
  Serious: Yes (Hospitalization)
  Sender: FDA-Public Use
  Company Number: FR-SA-2014SA142684

PATIENT
  Age: 59 Year
  Sex: Male

DRUGS (37)
  1. MEROPENEM. [Suspect]
     Active Substance: MEROPENEM
     Indication: BACTERIAL SEPSIS
     Route: 042
     Dates: start: 20140531, end: 20140615
  2. PREVISCAN [Concomitant]
     Active Substance: FLUINDIONE
     Dosage: (0.0.0.75 ON EVEN DAYS AND 0.0.1 ON ODD DAYS)
  3. APROVEL [Concomitant]
     Active Substance: IRBESARTAN
  4. TAZOCILLINE [Concomitant]
     Active Substance: PIPERACILLIN SODIUM\TAZOBACTAM SODIUM
     Dates: start: 20140208, end: 20140213
  5. TARGOCID [Suspect]
     Active Substance: TEICOPLANIN
     Indication: BACTERIAL SEPSIS
     Route: 042
     Dates: start: 20140310, end: 20140320
  6. MEROPENEM. [Suspect]
     Active Substance: MEROPENEM
     Indication: BACTERIAL SEPSIS
     Route: 042
     Dates: start: 20140310, end: 20140320
  7. PREVISCAN [Suspect]
     Active Substance: FLUINDIONE
     Indication: ATRIAL FIBRILLATION
     Dosage: STRENGTH: 20 MG
     Route: 048
     Dates: start: 20140301, end: 20140328
  8. PREVISCAN [Suspect]
     Active Substance: FLUINDIONE
     Indication: ATRIAL FIBRILLATION
     Dosage: STRENGTH: 20 MG
     Route: 048
     Dates: start: 20140611, end: 20140611
  9. LASILIX [Concomitant]
     Active Substance: FUROSEMIDE
  10. PYOSTACINE [Concomitant]
     Active Substance: PRISTINAMYCIN
     Dates: start: 20140207, end: 20140209
  11. CLINDAMYCIN [Concomitant]
     Active Substance: CLINDAMYCIN\CLINDAMYCIN PHOSPHATE
     Dates: start: 20140208, end: 20140208
  12. CIFLOX [Suspect]
     Active Substance: CIPROFLOXACIN
     Indication: BACTERIAL SEPSIS
     Route: 042
     Dates: start: 20140213, end: 20140306
  13. MEROPENEM. [Suspect]
     Active Substance: MEROPENEM
     Indication: BACTERIAL SEPSIS
     Route: 042
     Dates: start: 20140501, end: 20140515
  14. PREVISCAN [Suspect]
     Active Substance: FLUINDIONE
     Indication: ATRIAL FIBRILLATION
     Dosage: STRENGTH: 20 MG
     Route: 048
     Dates: start: 20140612, end: 20140616
  15. RIFADINE [Suspect]
     Active Substance: RIFAMPIN
     Indication: BACTERIAL SEPSIS
     Route: 065
     Dates: start: 20140310, end: 20140320
  16. MEROPENEM. [Suspect]
     Active Substance: MEROPENEM
     Indication: BACTERIAL SEPSIS
     Route: 042
     Dates: start: 20140213, end: 20140306
  17. PREVISCAN [Suspect]
     Active Substance: FLUINDIONE
     Indication: ATRIAL FIBRILLATION
     Dosage: STRENGTH: 20 MG
     Route: 048
     Dates: start: 20140610, end: 20140610
  18. CRESTOR [Concomitant]
     Active Substance: ROSUVASTATIN CALCIUM
  19. AUGMENTIN [Concomitant]
     Active Substance: AMOXICILLIN\CLAVULANATE POTASSIUM
     Dates: start: 20140204, end: 20140207
  20. ZYVOXID [Suspect]
     Active Substance: LINEZOLID
     Indication: BACTERIAL SEPSIS
     Route: 065
     Dates: start: 20140327, end: 20140410
  21. ZYVOXID [Suspect]
     Active Substance: LINEZOLID
     Indication: BACTERIAL SEPSIS
     Route: 065
     Dates: start: 20140208, end: 20140306
  22. TOPALGIC [Concomitant]
     Active Substance: TRAMADOL
  23. ECONAZOLE [Concomitant]
     Active Substance: ECONAZOLE
     Dates: start: 20140228, end: 201406
  24. CANCIDAS [Suspect]
     Active Substance: CASPOFUNGIN ACETATE
     Indication: BACTERIAL SEPSIS
     Route: 042
     Dates: start: 20140310, end: 20140320
  25. DOLIPRANE [Concomitant]
     Active Substance: ACETAMINOPHEN
  26. ISOPTIN [Concomitant]
     Active Substance: VERAPAMIL HYDROCHLORIDE
     Dosage: 1.0.1
  27. HEPARIN SODIUM. [Suspect]
     Active Substance: HEPARIN SODIUM
     Indication: BACTERIAL SEPSIS
     Route: 058
     Dates: start: 20140419, end: 20140610
  28. PREVISCAN [Suspect]
     Active Substance: FLUINDIONE
     Indication: ATRIAL FIBRILLATION
     Dosage: STRENGTH: 20 MG
     Route: 048
     Dates: start: 20140527, end: 20140609
  29. PREVISCAN [Suspect]
     Active Substance: FLUINDIONE
     Indication: ATRIAL FIBRILLATION
     Dosage: STRENGTH: 20 MG
     Route: 048
     Dates: start: 20140401, end: 20140414
  30. CANCIDAS [Suspect]
     Active Substance: CASPOFUNGIN ACETATE
     Indication: BACTERIAL SEPSIS
     Route: 042
     Dates: start: 20140327, end: 20140408
  31. SYMBICORT [Concomitant]
     Active Substance: BUDESONIDE\FORMOTEROL FUMARATE DIHYDRATE
  32. HEPARIN SODIUM. [Suspect]
     Active Substance: HEPARIN SODIUM
     Indication: BACTERIAL SEPSIS
     Route: 058
     Dates: start: 20140209, end: 20140304
  33. CIFLOX [Suspect]
     Active Substance: CIPROFLOXACIN
     Indication: BACTERIAL SEPSIS
     Route: 042
     Dates: start: 20140602, end: 20140615
  34. MEROPENEM. [Suspect]
     Active Substance: MEROPENEM
     Indication: BACTERIAL SEPSIS
     Route: 042
     Dates: start: 20140327, end: 20140410
  35. ZYVOXID [Suspect]
     Active Substance: LINEZOLID
     Indication: BACTERIAL SEPSIS
     Route: 065
     Dates: start: 20140506, end: 20140527
  36. SPIRIVA [Concomitant]
     Active Substance: TIOTROPIUM BROMIDE MONOHYDRATE
  37. STAGID [Concomitant]
     Active Substance: METFORMIN PAMOATE

REACTIONS (2)
  - Dermatitis exfoliative [Recovered/Resolved]
  - Urticaria [Recovered/Resolved]

NARRATIVE: CASE EVENT DATE: 20140303
